FAERS Safety Report 4307817-2 (Version None)
Quarter: 2004Q1

REPORT INFORMATION
  Report Type: 
  Country: None (occurrence: None)
  Receive Date: 20040226
  Receipt Date: 20030716
  Transmission Date: 20041129
  Serious: Yes (Hospitalization)
  Sender: FDA-Public Use
  Company Number: 2003166536US

PATIENT
  Age: 62 Year
  Sex: Female
  Weight: 136.1 kg

DRUGS (4)
  1. CELEBREX [Suspect]
     Indication: OSTEOARTHRITIS
     Dosage: 500 MG, QD, ORAL
     Route: 048
     Dates: start: 20001201, end: 20010404
  2. DIOVAN [Concomitant]
  3. ZESTRIL [Concomitant]
  4. PREMPRO [Concomitant]

REACTIONS (1)
  - ANAPHYLACTIC REACTION [None]
